FAERS Safety Report 8911276 (Version 2)
Quarter: 2013Q1

REPORT INFORMATION
  Report Type: Spontaneous
  Country: US (occurrence: US)
  Receive Date: 20121116
  Receipt Date: 20130103
  Transmission Date: 20140127
  Serious: Yes (Death, Hospitalization)
  Sender: FDA-Public Use
  Company Number: US-GLAXOSMITHKLINE-A0995119A

PATIENT
  Age: 63 Year
  Sex: Female

DRUGS (5)
  1. VOTRIENT [Suspect]
     Indication: SARCOMA
     Dosage: 800MG PER DAY
     Route: 048
     Dates: start: 20120801
  2. FLAX SEED OIL [Concomitant]
  3. COD LIVER OIL [Concomitant]
  4. GOLDEN SEAL [Concomitant]
  5. ALBUTEROL INHALER [Concomitant]

REACTIONS (3)
  - Tumour excision [Unknown]
  - Pollakiuria [Not Recovered/Not Resolved]
  - Death [Fatal]
